FAERS Safety Report 17572908 (Version 1)
Quarter: 2020Q1

REPORT INFORMATION
  Report Type: Spontaneous
  Country: GB (occurrence: GB)
  Receive Date: 20200323
  Receipt Date: 20200323
  Transmission Date: 20200409
  Serious: Yes (Hospitalization, Other)
  Sender: FDA-Public Use
  Company Number: NVSC2020GB079728

PATIENT
  Age: 57 Year
  Sex: Male

DRUGS (3)
  1. TAZOCIN [Concomitant]
     Active Substance: PIPERACILLIN SODIUM\TAZOBACTAM SODIUM
     Indication: PRODUCT USED FOR UNKNOWN INDICATION
     Route: 065
  2. DOCETAXEL. [Suspect]
     Active Substance: DOCETAXEL
     Indication: PROSTATE CANCER
     Dosage: 150 MG
     Route: 042
     Dates: start: 20150902, end: 20151216
  3. GENTAMICIN. [Concomitant]
     Active Substance: GENTAMICIN
     Indication: PRODUCT USED FOR UNKNOWN INDICATION
     Route: 065

REACTIONS (5)
  - Cough [Unknown]
  - Neutropenic sepsis [Unknown]
  - Lower respiratory tract infection [Unknown]
  - Tachycardia [Unknown]
  - Pyrexia [Unknown]

NARRATIVE: CASE EVENT DATE: 20151002
